FAERS Safety Report 7985549-7 (Version None)
Quarter: 2011Q4

REPORT INFORMATION
  Report Type: 
  Country: None (occurrence: None)
  Receive Date: 20111216
  Receipt Date: 20111207
  Transmission Date: 20120403
  Serious: Yes (Disabling, Other)
  Sender: FDA-Public Use
  Company Number: FR-BRISTOL-MYERS SQUIBB COMPANY-16281776

PATIENT
  Age: 68 Year
  Sex: Female

DRUGS (7)
  1. ETOPOPHOS FOR INJ [Suspect]
     Dosage: 200MG/D INTRAVENOUSLY FOR 3 DAYS EVERY 3 WEEKS
     Route: 042
     Dates: start: 20111003, end: 20111026
  2. NOVORAPID [Concomitant]
     Indication: DIABETES MELLITUS
     Route: 058
     Dates: start: 20111003
  3. CARBOPLATIN [Suspect]
     Dosage: 570MG/D INTRAVENOUSLY FOR 1 DAY EVERY 3 WEEKS
     Route: 042
     Dates: start: 20111003, end: 20111024
  4. PERINDOPRIL ERBUMINE [Concomitant]
     Dosage: COVERSYL TABLET
     Route: 048
  5. PREDNISONE TAB [Suspect]
     Dosage: THE CORTANCYL DAILY DOSE WAS DECREASED TO 20MG/D.  CORTANCYL 30MG TABLET (PREDNISONE) 1/D ORALLY
     Route: 048
     Dates: start: 20110921
  6. LANTUS [Concomitant]
     Indication: DIABETES MELLITUS
     Route: 058
     Dates: start: 20111003
  7. AMLODIPINE BESYLATE [Concomitant]
     Dosage: AMLOR TABLET
     Route: 048

REACTIONS (2)
  - PARESIS [None]
  - MONONEUROPATHY [None]
